FAERS Safety Report 25561226 (Version 2)
Quarter: 2025Q3

REPORT INFORMATION
  Report Type: Report from Study
  Country: US (occurrence: US)
  Receive Date: 20250716
  Receipt Date: 20250915
  Transmission Date: 20251020
  Serious: Yes (Other)
  Sender: ABBVIE
  Company Number: US-ABBVIE-6370957

PATIENT
  Age: 76 Year
  Sex: Male

DRUGS (2)
  1. VENCLEXTA [Suspect]
     Active Substance: VENETOCLAX
     Indication: Mantle cell lymphoma
     Dosage: 4 VENCLEXTA OF 100 MG ONCE DAILY
     Route: 048
     Dates: start: 20250507
  2. BRUKINSA [Concomitant]
     Active Substance: ZANUBRUTINIB
     Indication: Mantle cell lymphoma
     Dates: start: 20250325

REACTIONS (7)
  - Cholecystectomy [Unknown]
  - Dyspepsia [Unknown]
  - Stress [Unknown]
  - Asthenia [Unknown]
  - Gastrointestinal disorder [Unknown]
  - Colectomy [Unknown]
  - Hernia [Unknown]

NARRATIVE: CASE EVENT DATE: 20250101
